FAERS Safety Report 25555447 (Version 1)
Quarter: 2025Q3

REPORT INFORMATION
  Report Type: Spontaneous
  Country: US (occurrence: US)
  Receive Date: 20250715
  Receipt Date: 20250715
  Transmission Date: 20251020
  Serious: No
  Sender: NOVO NORDISK
  Company Number: US-NOVOPROD-1239994

PATIENT
  Sex: Male

DRUGS (1)
  1. OZEMPIC [Suspect]
     Active Substance: SEMAGLUTIDE
     Indication: Product used for unknown indication
     Route: 058

REACTIONS (7)
  - Gastrointestinal sounds abnormal [Unknown]
  - Eructation [Unknown]
  - Constipation [Unknown]
  - Flatulence [Unknown]
  - Weight decreased [Unknown]
  - Flatulence [Unknown]
  - Intentional dose omission [Unknown]
